FAERS Safety Report 23965957 (Version 1)
Quarter: 2024Q2

REPORT INFORMATION
  Report Type: Spontaneous
  Country: RO (occurrence: RO)
  Receive Date: 20240612
  Receipt Date: 20240612
  Transmission Date: 20240716
  Serious: Yes (Other)
  Sender: FDA-Public Use
  Company Number: RO-AMGEN-ROUSP2024113536

PATIENT
  Age: 80 Year
  Sex: Female

DRUGS (2)
  1. PROLIA [Suspect]
     Active Substance: DENOSUMAB
     Indication: Osteoporosis postmenopausal
     Dosage: 60 MILLIGRAM PER MILLILITRE 1 SYRINGE, Q6MO
     Route: 058
     Dates: start: 2015
  2. VITAMIN D [Concomitant]
     Active Substance: VITAMIN D NOS
     Indication: Osteoporosis postmenopausal
     Dosage: UNK

REACTIONS (4)
  - Hand fracture [Unknown]
  - Fall [Unknown]
  - Joint injury [Unknown]
  - Limb injury [Unknown]

NARRATIVE: CASE EVENT DATE: 20240401
